FAERS Safety Report 6822899-1 (Version None)
Quarter: 2010Q3

REPORT INFORMATION
  Report Type: 
  Country: None (occurrence: None)
  Receive Date: 20100708
  Receipt Date: 20100630
  Transmission Date: 20110219
  Serious: Yes (Disabling)
  Sender: FDA-Public Use
  Company Number: GXKR2010GB05957

PATIENT
  Age: 68 Year
  Sex: Male
  Weight: 90 kg

DRUGS (3)
  1. DICLOFENAC (NGX) [Suspect]
     Indication: POSTOPERATIVE HERNIA
     Dosage: 50 MG, UNK
     Route: 048
     Dates: start: 20100201, end: 20100320
  2. TAMSULOSIN HYDROCHLORIDE [Suspect]
     Indication: POSTOPERATIVE HERNIA
     Dosage: 40 UG, UNK
     Route: 048
     Dates: start: 20091201, end: 20100406
  3. CETRIZINE [Concomitant]
     Indication: HOUSE DUST ALLERGY
     Dosage: 10 MG, UNK
     Route: 048

REACTIONS (1)
  - MYALGIA [None]
